FAERS Safety Report 16167265 (Version 1)
Quarter: 2019Q2

REPORT INFORMATION
  Report Type: Spontaneous
  Country: US (occurrence: US)
  Receive Date: 20190408
  Receipt Date: 20190408
  Transmission Date: 20190711
  Serious: No
  Sender: FDA-Public Use
  Company Number: US-009507513-1904USA002790

PATIENT
  Age: 67 Year
  Sex: Female

DRUGS (4)
  1. PREVYMIS [Suspect]
     Active Substance: LETERMOVIR
     Indication: ANTIVIRAL PROPHYLAXIS
     Dosage: UNK
     Dates: start: 2018, end: 2018
  2. PREVYMIS [Suspect]
     Active Substance: LETERMOVIR
     Indication: CYTOMEGALOVIRUS INFECTION
     Dosage: UNK
     Dates: start: 2018, end: 2018
  3. TACROLIMUS. [Concomitant]
     Active Substance: TACROLIMUS
     Indication: IMMUNOSUPPRESSANT DRUG THERAPY
     Dosage: 10-12, UNK
  4. PREDNISONE. [Concomitant]
     Active Substance: PREDNISONE
     Indication: IMMUNOSUPPRESSANT DRUG THERAPY
     Dosage: 10 MILLIGRAM, UNK

REACTIONS (2)
  - Off label use [Unknown]
  - Treatment failure [Unknown]

NARRATIVE: CASE EVENT DATE: 2018
